FAERS Safety Report 11847313 (Version 1)
Quarter: 2015Q4

REPORT INFORMATION
  Report Type: Spontaneous
  Country: US (occurrence: US)
  Receive Date: 20151217
  Receipt Date: 20151217
  Transmission Date: 20160305
  Serious: No
  Sender: FDA-Public Use
  Company Number: US-ROCHE-1562448

PATIENT
  Age: 33 Year
  Sex: Male

DRUGS (3)
  1. TAMIFLU [Suspect]
     Active Substance: OSELTAMIVIR PHOSPHATE
     Indication: INFLUENZA
     Route: 065
     Dates: start: 20150214, end: 20150214
  2. FLONASE (UNITED STATES) [Concomitant]
  3. LEXAPRO [Concomitant]
     Active Substance: ESCITALOPRAM OXALATE
     Indication: ANXIETY

REACTIONS (5)
  - Amnesia [Unknown]
  - Vomiting [Unknown]
  - Muscle spasms [Unknown]
  - Abdominal pain upper [Unknown]
  - Retching [Unknown]

NARRATIVE: CASE EVENT DATE: 20150214
